FAERS Safety Report 4435684-5 (Version None)
Quarter: 2004Q3

REPORT INFORMATION
  Report Type: 
  Country: None (occurrence: None)
  Receive Date: 20040726
  Receipt Date: 20040416
  Transmission Date: 20050211
  Serious: No
  Sender: FDA-Public Use
  Company Number: US_011177116

PATIENT
  Age: 45 Year
  Sex: Female
  Weight: 50 kg

DRUGS (4)
  1. EVISTA [Suspect]
     Dosage: 60 MG/1 DAY
     Dates: start: 19990101
  2. FORTEO [Suspect]
     Indication: OSTEOPOROSIS
     Dates: start: 20030401
  3. FOSAMAX [Concomitant]
  4. CALCIUM [Concomitant]

REACTIONS (1)
  - BONE DENSITY DECREASED [None]
